FAERS Safety Report 5163048-8 (Version None)
Quarter: 2006Q4

REPORT INFORMATION
  Report Type: 
  Country: None (occurrence: None)
  Receive Date: 20061201
  Receipt Date: 20010313
  Transmission Date: 20070319
  Serious: Yes (Hospitalization)
  Sender: FDA-Public Use
  Company Number: FR-BOEHRINGER INGELHEIM PHARMACEUTICALS, INC.-2001-FF-S0154

PATIENT
  Sex: Male
  Weight: 3.06 kg

DRUGS (5)
  1. VIRAMUNE [Suspect]
     Indication: HUMAN IMMUNODEFICIENCY VIRUS TRANSMISSION
     Route: 048
  2. RETROVIR [Suspect]
     Indication: HUMAN IMMUNODEFICIENCY VIRUS TRANSMISSION
     Route: 064
     Dates: start: 20000210, end: 20000210
  3. RETROVIR [Suspect]
     Indication: HIV INFECTION
     Route: 064
     Dates: start: 20000103
  4. RETROVIR [Suspect]
     Route: 048
  5. COMBIVIR [Suspect]
     Indication: HIV INFECTION
     Route: 064
     Dates: end: 19990910

REACTIONS (7)
  - ALANINE AMINOTRANSFERASE INCREASED [None]
  - ASPARTATE AMINOTRANSFERASE INCREASED [None]
  - DRUG EXPOSURE DURING PREGNANCY [None]
  - HYPERKALAEMIA [None]
  - LACTIC ACIDOSIS [None]
  - METABOLIC ACIDOSIS [None]
  - NEONATAL DISORDER [None]
